FAERS Safety Report 4906204-3 (Version None)
Quarter: 2006Q1

REPORT INFORMATION
  Report Type: 
  Country: None (occurrence: None)
  Receive Date: 20060207
  Receipt Date: 20060119
  Transmission Date: 20060701
  Serious: Yes (Death)
  Sender: FDA-Public Use
  Company Number: 2006RR-01520

PATIENT
  Sex: Male
  Weight: 7 kg

DRUGS (2)
  1. ACETAMINOPHEN [Suspect]
     Indication: IRRITABILITY
     Dosage: 5 ML, ORAL
     Route: 048
     Dates: start: 20050131, end: 20050131
  2. MEDISED(PROMETHAZINE) [Suspect]
     Indication: IRRITABILITY
     Dosage: 5ML, ORAL
     Route: 048
     Dates: start: 20050131, end: 20050131

REACTIONS (1)
  - SUDDEN DEATH [None]
